FAERS Safety Report 26211114 (Version 1)
Quarter: 2025Q4

REPORT INFORMATION
  Report Type: Spontaneous
  Country: US (occurrence: US)
  Receive Date: 20251230
  Receipt Date: 20251230
  Transmission Date: 20260117
  Serious: Yes (Hospitalization, Other)
  Sender: AMGEN
  Company Number: US-AMGEN-USASP2025254648

PATIENT
  Age: 57 Year

DRUGS (6)
  1. TEPEZZA [Suspect]
     Active Substance: TEPROTUMUMAB-TRBW
     Indication: Graves^ disease
     Dosage: UNK UNK, QMO, (INFUSION 1)
     Route: 040
     Dates: start: 20250206
  2. TEPEZZA [Suspect]
     Active Substance: TEPROTUMUMAB-TRBW
     Dosage: UNK UNK, QMO, (INFUSION 2)
     Route: 040
     Dates: start: 20250306
  3. TEPEZZA [Suspect]
     Active Substance: TEPROTUMUMAB-TRBW
     Dosage: UNK UNK, QMO, (INFUSION 3)
     Route: 040
     Dates: start: 20250410
  4. TEPEZZA [Suspect]
     Active Substance: TEPROTUMUMAB-TRBW
     Dosage: UNK UNK, QMO, (INFUSION 4)
     Route: 040
     Dates: start: 20250501
  5. TEPEZZA [Suspect]
     Active Substance: TEPROTUMUMAB-TRBW
     Dosage: UNK UNK, QMO, (INFUSION 5)
     Route: 040
     Dates: start: 20250605
  6. TEPEZZA [Suspect]
     Active Substance: TEPROTUMUMAB-TRBW
     Dosage: UNK UNK, QMO, (INFUSION 6, LAST INFUSION)
     Route: 040
     Dates: start: 20250707, end: 20250707

REACTIONS (6)
  - Diabetes mellitus [Unknown]
  - Cerebrovascular accident [Unknown]
  - Lower limb fracture [Unknown]
  - Fall [Unknown]
  - Wrist fracture [Unknown]
  - Off label use [Unknown]

NARRATIVE: CASE EVENT DATE: 20250201
